FAERS Safety Report 4291428-1 (Version None)
Quarter: 2004Q1

REPORT INFORMATION
  Report Type: 
  Country: None (occurrence: None)
  Receive Date: 20040211
  Receipt Date: 20040109
  Transmission Date: 20041129
  Serious: Yes (Life-Threatening, Hospitalization)
  Sender: FDA-Public Use
  Company Number: PHBS2004JP00711

PATIENT
  Age: 62 Year
  Sex: Male

DRUGS (3)
  1. DIOVAN [Suspect]
     Indication: HYPERTENSION
     Dosage: 80 MG/DAY
     Route: 048
     Dates: start: 20031214, end: 20031228
  2. NORVASC [Concomitant]
     Dosage: 5 MG, UNK
     Route: 048
     Dates: start: 20031216
  3. TRANDATE [Concomitant]
     Dosage: 300 MG, UNK
     Route: 048
     Dates: start: 20031217

REACTIONS (9)
  - BLOOD POTASSIUM INCREASED [None]
  - BLOOD SODIUM DECREASED [None]
  - DIZZINESS [None]
  - EXTRADURAL HAEMATOMA [None]
  - FALL [None]
  - HEAD INJURY [None]
  - HUMERUS FRACTURE [None]
  - HYPERKALAEMIA [None]
  - HYPONATRAEMIA [None]
